FAERS Safety Report 17938788 (Version 1)
Quarter: 2020Q2

REPORT INFORMATION
  Report Type: Spontaneous
  Country: DE (occurrence: DE)
  Receive Date: 20200625
  Receipt Date: 20200625
  Transmission Date: 20200714
  Serious: Yes (Life-Threatening, Hospitalization, Other)
  Sender: FDA-Public Use
  Company Number: DE-TEVA-2020-DE-1790545

PATIENT
  Age: 49 Year
  Sex: Male
  Weight: 180 kg

DRUGS (4)
  1. FLUCYTOSIN [Concomitant]
     Indication: CANDIDA SEPSIS
     Dosage: 8-10 A.M., 4-6 P.M., 0-2 A.M, 7.5 G
     Route: 042
  2. ERTAPENEM. [Concomitant]
     Active Substance: ERTAPENEM SODIUM
     Indication: SEPSIS
     Dosage: 8 A.M. TO 9 A.M., 8 P.M. TO 9 P.M,  2 G
     Route: 042
  3. LINEZOLID. [Suspect]
     Active Substance: LINEZOLID
     Indication: SEPSIS
     Dosage: 1200 MG
     Route: 042
     Dates: start: 20200531, end: 20200605
  4. CASPOFUNGIN [Concomitant]
     Active Substance: CASPOFUNGIN
     Indication: CANDIDA SEPSIS
     Dosage: 10-11 A.M,  70 MG
     Route: 042

REACTIONS (2)
  - Renal failure [Not Recovered/Not Resolved]
  - Rhabdomyolysis [Not Recovered/Not Resolved]

NARRATIVE: CASE EVENT DATE: 20200603
